FAERS Safety Report 23916384 (Version 1)
Quarter: 2024Q2

REPORT INFORMATION
  Report Type: Spontaneous
  Country: US (occurrence: US)
  Receive Date: 20240529
  Receipt Date: 20240529
  Transmission Date: 20240715
  Serious: No
  Sender: FDA-Public Use
  Company Number: US-BEH-2024172426

PATIENT
  Sex: Male

DRUGS (3)
  1. HIZENTRA [Suspect]
     Active Substance: HUMAN IMMUNOGLOBULIN G
     Indication: Humoral immune defect
     Dosage: 6 G, QW
     Route: 058
     Dates: start: 202201
  2. EPINEPHRINE [Concomitant]
     Active Substance: EPINEPHRINE
  3. SKYTROFA [Concomitant]
     Active Substance: LONAPEGSOMATROPIN-TCGD

REACTIONS (1)
  - Drug hypersensitivity [Unknown]
